FAERS Safety Report 11491110 (Version 1)
Quarter: 2015Q3

REPORT INFORMATION
  Report Type: Spontaneous
  Country: US (occurrence: US)
  Receive Date: 20150910
  Receipt Date: 20150910
  Transmission Date: 20151125
  Serious: No
  Sender: FDA-Public Use
  Company Number: US-JNJFOC-20141209531

PATIENT
  Sex: Male

DRUGS (2)
  1. METAMUCIL [Concomitant]
     Active Substance: PLANTAGO SEED
     Indication: FREQUENT BOWEL MOVEMENTS
     Route: 065
  2. IMODIUM [Suspect]
     Active Substance: LOPERAMIDE HYDROCHLORIDE
     Indication: DIARRHOEA
     Route: 048

REACTIONS (1)
  - Drug administration error [Unknown]
